FAERS Safety Report 5671393-2 (Version None)
Quarter: 2008Q1

REPORT INFORMATION
  Report Type: 
  Country: None (occurrence: None)
  Receive Date: 20080318
  Receipt Date: 20080306
  Transmission Date: 20080703
  Serious: Yes (Other)
  Sender: FDA-Public Use
  Company Number: DE-PFIZER INC-2008021711

PATIENT
  Sex: Female
  Weight: 63 kg

DRUGS (5)
  1. LYRICA [Suspect]
     Indication: GENERALISED ANXIETY DISORDER
     Dosage: DAILY DOSE:150MG
     Route: 048
  2. REBOXETINE [Concomitant]
     Route: 048
  3. IRON [Concomitant]
     Route: 048
  4. RAMIPRIL [Concomitant]
     Route: 048
     Dates: start: 20080102, end: 20080220
  5. ESTROGENS [Concomitant]
     Route: 062

REACTIONS (4)
  - ALANINE AMINOTRANSFERASE INCREASED [None]
  - ASPARTATE AMINOTRANSFERASE INCREASED [None]
  - GAMMA-GLUTAMYLTRANSFERASE INCREASED [None]
  - TRANSAMINASES INCREASED [None]
